FAERS Safety Report 10428687 (Version 1)
Quarter: 2014Q3

REPORT INFORMATION
  Report Type: Spontaneous
  Country: IN (occurrence: None)
  Receive Date: 20140829
  Receipt Date: 20140829
  Transmission Date: 20150326
  Serious: Yes (Other)
  Sender: FDA-Public Use
  Company Number: ABR_01784_2014

PATIENT
  Age: 12 Year
  Sex: Male

DRUGS (1)
  1. LAMOTRIGINE (LAMOTRIGINE) [Suspect]
     Active Substance: LAMOTRIGINE
     Indication: PARTIAL SEIZURES
     Dosage: (DF)
     Dates: start: 200909, end: 2009

REACTIONS (6)
  - Scratch [None]
  - Rash macular [None]
  - Cholestasis [None]
  - Skin hyperpigmentation [None]
  - Vanishing bile duct syndrome [None]
  - Hepatomegaly [None]

NARRATIVE: CASE EVENT DATE: 2009
